FAERS Safety Report 5385081-3 (Version None)
Quarter: 2007Q3

REPORT INFORMATION
  Report Type: 
  Country: None (occurrence: None)
  Receive Date: 20070710
  Receipt Date: 20070710
  Transmission Date: 20080115
  Serious: No
  Sender: FDA-Public Use
  Company Number: None

PATIENT
  Sex: Female
  Weight: 74.5 kg

DRUGS (2)
  1. ANCEF [Suspect]
     Indication: PREOPERATIVE CARE
     Dosage: 2GM ONE TIME ONLY IV
     Route: 042
     Dates: start: 20070622
  2. ANCEF [Suspect]
     Indication: PROPHYLAXIS
     Dosage: 2GM ONE TIME ONLY IV
     Route: 042
     Dates: start: 20070622

REACTIONS (2)
  - INFUSION RELATED REACTION [None]
  - PRURITUS [None]
